FAERS Safety Report 8016292-6 (Version None)
Quarter: 2011Q4

REPORT INFORMATION
  Report Type: 
  Country: None (occurrence: None)
  Receive Date: 20111228
  Receipt Date: 20111228
  Transmission Date: 20120403
  Serious: Yes (Disabling)
  Sender: FDA-Public Use
  Company Number: None

PATIENT
  Age: 50 Year
  Sex: Female
  Weight: 104.3273 kg

DRUGS (1)
  1. GEMFIBROZIL [Suspect]
     Dosage: 2 PILLS @ 600MG 3 TIME DAILY
     Dates: start: 20090909, end: 20090919

REACTIONS (6)
  - MUSCLE DISORDER [None]
  - PRODUCT COMMINGLING [None]
  - GASTRIC DISORDER [None]
  - MALAISE [None]
  - ARTHROPATHY [None]
  - DRUG DISPENSING ERROR [None]
